FAERS Safety Report 21653494 (Version 2)
Quarter: 2023Q1

REPORT INFORMATION
  Report Type: Report from Study
  Country: BG (occurrence: BG)
  Receive Date: 20221128
  Receipt Date: 20230117
  Transmission Date: 20230417
  Serious: Yes (Hospitalization)
  Sender: FDA-Public Use
  Company Number: BG-ABBVIE-4215480

PATIENT
  Age: 68 Year
  Sex: Female

DRUGS (1)
  1. RINVOQ [Suspect]
     Active Substance: UPADACITINIB
     Indication: Rheumatoid arthritis
     Dosage: 1 TABLET?FIRST ADMIN DATE: AUG 2022?LAST ADMIN DATE: 2022
     Route: 048

REACTIONS (1)
  - Exostosis [Unknown]

NARRATIVE: CASE EVENT DATE: 20220101
